FAERS Safety Report 20723650 (Version 4)
Quarter: 2022Q3

REPORT INFORMATION
  Report Type: Report from Study
  Country: US (occurrence: US)
  Receive Date: 20220419
  Receipt Date: 20220720
  Transmission Date: 20221027
  Serious: Yes (Other)
  Sender: FDA-Public Use
  Company Number: US-NOVARTISTESTPH-NVSC2022US090213

PATIENT
  Age: 57 Year
  Sex: Male

DRUGS (1)
  1. ENTRESTO [Suspect]
     Active Substance: SACUBITRIL\VALSARTAN
     Indication: Product used for unknown indication
     Dosage: UNK
     Route: 065

REACTIONS (5)
  - Cellulitis [Unknown]
  - Cerebrovascular accident [Unknown]
  - Memory impairment [Unknown]
  - Glycosylated haemoglobin increased [Unknown]
  - Weight abnormal [Unknown]
